FAERS Safety Report 13318853 (Version 1)
Quarter: 2017Q1

REPORT INFORMATION
  Report Type: Spontaneous
  Country: US (occurrence: US)
  Receive Date: 20170310
  Receipt Date: 20170310
  Transmission Date: 20170428
  Serious: No
  Sender: FDA-Public Use
  Company Number: US-VERTEX PHARMACEUTICALS-2017-001361

PATIENT

DRUGS (1)
  1. KALYDECO [Suspect]
     Active Substance: IVACAFTOR
     Indication: CYSTIC FIBROSIS
     Dosage: UNK
     Route: 048
     Dates: start: 2012

REACTIONS (4)
  - Drug dose omission [Recovered/Resolved]
  - Insurance issue [Not Recovered/Not Resolved]
  - Off label use [Unknown]
  - Forced expiratory volume decreased [Recovered/Resolved]
